FAERS Safety Report 12178796 (Version 1)
Quarter: 2016Q1

REPORT INFORMATION
  Report Type: Spontaneous
  Country: US (occurrence: None)
  Receive Date: 20160314
  Receipt Date: 20160314
  Transmission Date: 20160526
  Serious: Yes (Other)
  Sender: FDA-Public Use
  Company Number: None

PATIENT
  Age: 52 Year
  Sex: Male

DRUGS (1)
  1. RIBAVIRIN 200 DF [Suspect]
     Active Substance: RIBAVIRIN
     Route: 048

REACTIONS (1)
  - Fatigue [None]

NARRATIVE: CASE EVENT DATE: 20160310
